FAERS Safety Report 9227567 (Version 2)
Quarter: 2014Q1

REPORT INFORMATION
  Report Type: Spontaneous
  Country: CA (occurrence: CA)
  Receive Date: 20130412
  Receipt Date: 20140127
  Transmission Date: 20141002
  Serious: Yes (Other)
  Sender: FDA-Public Use
  Company Number: CA-JNJFOC-20120207114

PATIENT
  Age: 47 Year
  Sex: Male
  Weight: 72.58 kg

DRUGS (2)
  1. REMICADE [Suspect]
     Indication: CROHN^S DISEASE
     Dosage: 14 INFUSIONS TILL DATE
     Route: 042
     Dates: start: 20101207
  2. IMURAN [Concomitant]
     Route: 048

REACTIONS (7)
  - Incisional drainage [Unknown]
  - Incision site complication [Unknown]
  - Intestinal operation [Unknown]
  - Scar [Unknown]
  - Incision site complication [Unknown]
  - Incision site pain [Unknown]
  - Local swelling [Recovered/Resolved]
